FAERS Safety Report 8485110-4 (Version None)
Quarter: 2012Q3

REPORT INFORMATION
  Report Type: 
  Country: None (occurrence: None)
  Receive Date: 20120703
  Receipt Date: 20120628
  Transmission Date: 20120928
  Serious: Yes (Hospitalization)
  Sender: FDA-Public Use
  Company Number: FR-PFIZER INC-2012155407

PATIENT
  Age: 64 Year
  Sex: Male

DRUGS (2)
  1. SUTENT [Suspect]
     Indication: RENAL CANCER METASTATIC
     Dosage: UNK
     Dates: start: 20080125
  2. SUTENT [Suspect]
     Dosage: UNK
     Dates: start: 20080609, end: 20080706

REACTIONS (1)
  - GENERAL PHYSICAL HEALTH DETERIORATION [None]
